FAERS Safety Report 21532735 (Version 1)
Quarter: 2022Q4

REPORT INFORMATION
  Report Type: Spontaneous
  Country: US (occurrence: US)
  Receive Date: 20221101
  Receipt Date: 20221101
  Transmission Date: 20230113
  Serious: Yes (Hospitalization, Other)
  Sender: FDA-Public Use
  Company Number: US-CADILA HEALTHCARE LIMITED-US-ZYDUS-084040

PATIENT

DRUGS (4)
  1. FINGOLIMOD [Suspect]
     Active Substance: FINGOLIMOD
     Indication: Multiple sclerosis relapse
     Dosage: UNK
     Route: 065
  2. FLUCONAZOLE [Suspect]
     Active Substance: FLUCONAZOLE
     Indication: Chest wall mass
     Dosage: 400 MILLIGRAM, QD
     Route: 048
  3. FLUCYTOSINE [Concomitant]
     Active Substance: FLUCYTOSINE
     Indication: Chest wall mass
     Dosage: UNK
     Route: 065
  4. AMPHOTERICIN B [Concomitant]
     Active Substance: AMPHOTERICIN B
     Indication: Chest wall mass
     Dosage: UNK
     Route: 065

REACTIONS (4)
  - Osteomyelitis [Recovering/Resolving]
  - Chest wall mass [Recovering/Resolving]
  - Cryptococcosis [Recovering/Resolving]
  - Pruritus [Unknown]
